FAERS Safety Report 18169903 (Version 1)
Quarter: 2020Q3

REPORT INFORMATION
  Report Type: Spontaneous
  Country: US (occurrence: US)
  Receive Date: 20200819
  Receipt Date: 20200819
  Transmission Date: 20201103
  Serious: Yes (Hospitalization, Other)
  Sender: FDA-Public Use
  Company Number: US-SUN PHARMACEUTICAL INDUSTRIES LTD-2020R1-257836

PATIENT
  Age: 54 Year
  Sex: Male

DRUGS (2)
  1. TRIAMCINOLONE [Concomitant]
     Active Substance: TRIAMCINOLONE
     Indication: PRODUCT USED FOR UNKNOWN INDICATION
     Route: 065
  2. ILUMYA [Suspect]
     Active Substance: TILDRAKIZUMAB-ASMN
     Indication: PSORIASIS
     Dosage: 100 MILLIGRAM, ONCE EVERY 12 WEEKS STARTING AT WEEK 4
     Route: 058
     Dates: start: 20200218

REACTIONS (6)
  - Lung disorder [Not Recovered/Not Resolved]
  - Psoriasis [Not Recovered/Not Resolved]
  - Product administration interrupted [Unknown]
  - Atrial fibrillation [Recovered/Resolved]
  - Coronavirus infection [Recovering/Resolving]
  - Cardiac disorder [Not Recovered/Not Resolved]
